FAERS Safety Report 12966296 (Version 5)
Quarter: 2017Q1

REPORT INFORMATION
  Report Type: Report from Study
  Country: None (occurrence: AT)
  Receive Date: 20161122
  Receipt Date: 20170314
  Transmission Date: 20170428
  Serious: Yes (Hospitalization)
  Sender: FDA-Public Use
  Company Number: AT-ABBVIE-16P-009-1751891-00

PATIENT
  Age: 71 Year
  Sex: Female
  Weight: 61.7 kg

DRUGS (18)
  1. EUTHYROX [Concomitant]
     Active Substance: LEVOTHYROXINE SODIUM
     Indication: HYPOTHYROIDISM
  2. VENETOCLAX [Suspect]
     Active Substance: VENETOCLAX
     Indication: B-CELL LYMPHOMA
     Dosage: MOST RECENT DOSE (800 MG) PRIOR TO THE EVENT ONSET WAS ON 12OCT16 AND 02NOV16
     Route: 048
     Dates: start: 20160822
  3. NOMEXOR [Concomitant]
     Active Substance: NEBIVOLOL HYDROCHLORIDE
     Indication: HYPERTENSION
  4. SYNJARDY [Concomitant]
     Active Substance: EMPAGLIFLOZIN\METFORMIN HYDROCHLORIDE
     Indication: TYPE 2 DIABETES MELLITUS
  5. RITUXIMAB [Suspect]
     Active Substance: RITUXIMAB
     Indication: B-CELL LYMPHOMA
     Dosage: MOST RECENT DOSE  PRIOR TO ENTEROCOLOITIS (630 MG) WAS 03/OCT/16
     Route: 042
     Dates: start: 20160818
  6. RITUXIMAB [Suspect]
     Active Substance: RITUXIMAB
     Dosage: MOST RECENT DOSE PRIOR TO SECOND EPISODE OF NEUTROPENIA (630MG) WAS 24/OCT/2016
     Route: 042
  7. CYCLOPHOSPHAMIDE. [Suspect]
     Active Substance: CYCLOPHOSPHAMIDE
     Indication: B-CELL LYMPHOMA
     Dosage: MOST RECENT DOSE PRIOR TO ENTEROCOLITIS (1250MG) WAS 03/OCT/16
     Route: 042
     Dates: start: 20160819
  8. VINCRISTINE [Suspect]
     Active Substance: VINCRISTINE
     Indication: B-CELL LYMPHOMA
     Dosage: MOST RECENT DOSE PRIOR TO ENTEROCOLITIS (1MG) WAS 03/OCT/2016
     Route: 042
     Dates: start: 20160819
  9. VINCRISTINE [Suspect]
     Active Substance: VINCRISTINE
     Dosage: MOST RECENT DOSE PRIOR TO SECOND EPISODE OF NEUTROPENIA (1MG) WAS 24/OCT/2016
     Route: 042
  10. DIAMICRON [Concomitant]
     Active Substance: GLICLAZIDE
     Indication: TYPE 2 DIABETES MELLITUS
  11. AMELIOR PLUS HCT [Concomitant]
     Indication: HYPERTENSION
  12. PRAXITEN [Concomitant]
     Active Substance: OXAZEPAM
     Indication: NERVOUSNESS
  13. DOXORUBICIN [Suspect]
     Active Substance: DOXORUBICIN
     Dosage: MOST RECENT DOSE PRIOR TO SECOND EPISODE OF NEUTROPENIA (85 MG) WAS 24/OCT/2016
     Route: 042
  14. PREDNISONE. [Suspect]
     Active Substance: PREDNISONE
     Dosage: MOST RECENT DOSE PRIOR TO ENTEROCOLITIS (100MG) WAS 07OCT16
     Route: 048
  15. PREDNISONE. [Suspect]
     Active Substance: PREDNISONE
     Indication: B-CELL LYMPHOMA
     Dosage: MOST RECENT DOSE PRIOR TO EPISODES OF NEUTROPENIA (100MG) WAS 03OCT16 AND 28OCT16
     Route: 048
     Dates: start: 20160818
  16. CYCLOPHOSPHAMIDE. [Suspect]
     Active Substance: CYCLOPHOSPHAMIDE
     Dosage: MOST RECENT DOSE PRIOR TO SECOND EPISODE OF NEUTROPENIA (1200MG) WAS 24/OCT/16
     Route: 042
  17. DOXORUBICIN [Suspect]
     Active Substance: DOXORUBICIN
     Indication: B-CELL LYMPHOMA
     Dosage: MOST RECENT DOSE PRIOR TO ENTEROCOLITIS (85 MG) WAS 03/OCT/2016
     Route: 042
     Dates: start: 20160819
  18. RED BLOOD CELL CONCENTRATE [Concomitant]
     Active Substance: HUMAN RED BLOOD CELL
     Indication: ANAEMIA
     Dates: start: 20160923, end: 20160923

REACTIONS (3)
  - Enterocolitis [Recovered/Resolved]
  - Neutropenia [Recovered/Resolved]
  - Vomiting [Recovered/Resolved]

NARRATIVE: CASE EVENT DATE: 20161012
